FAERS Safety Report 9049486 (Version 3)
Quarter: 2013Q2

REPORT INFORMATION
  Report Type: Report from Study
  Country: US (occurrence: US)
  Receive Date: 20130205
  Receipt Date: 20130405
  Transmission Date: 20140414
  Serious: Yes (Hospitalization)
  Sender: FDA-Public Use
  Company Number: US-JNJFOC-20130114103

PATIENT
  Age: 13 Year
  Sex: Male
  Weight: 53.9 kg

DRUGS (6)
  1. REMICADE [Suspect]
     Indication: CROHN^S DISEASE
     Route: 042
     Dates: start: 20130115
  2. REMICADE [Suspect]
     Indication: CROHN^S DISEASE
     Route: 042
     Dates: start: 20110810
  3. IRON [Concomitant]
     Route: 065
  4. MULTIVITAMINS [Concomitant]
     Route: 065
  5. OMEPRAZOLE [Concomitant]
     Route: 065
  6. ANTIBIOTICS [Concomitant]
     Indication: INFLAMMATORY BOWEL DISEASE
     Route: 065

REACTIONS (1)
  - Crohn^s disease [Recovered/Resolved]
